FAERS Safety Report 8969949 (Version 1)
Quarter: 2012Q4

REPORT INFORMATION
  Report Type: 
  Country: US (occurrence: US)
  Receive Date: 20121218
  Receipt Date: 20121218
  Transmission Date: 20130627
  Serious: No
  Sender: FDA-Public Use
  Company Number: US-BRISTOL-MYERS SQUIBB COMPANY-16231144

PATIENT

DRUGS (2)
  1. ABILIFY [Suspect]
     Indication: BIPOLAR DISORDER
     Dosage: Dose lowered to 2 mg.
  2. LAMICTAL [Suspect]
     Indication: BIPOLAR DISORDER

REACTIONS (2)
  - Restlessness [Recovered/Resolved]
  - Thinking abnormal [Recovered/Resolved]
